FAERS Safety Report 6999549 (Version 9)
Quarter: 2013Q2

REPORT INFORMATION
  Report Type: Report from Study
  Country: JP (occurrence: JP)
  Receive Date: 20090521
  Receipt Date: 20130424
  Transmission Date: 20140414
  Serious: Yes (Death, Hospitalization)
  Sender: FDA-Public Use
  Company Number: JP-BRISTOL-MYERS SQUIBB COMPANY-14627426

PATIENT
  Age: 59 Year
  Sex: Male

DRUGS (42)
  1. SPRYCEL [Suspect]
     Indication: ACUTE LYMPHOCYTIC LEUKAEMIA
     Dosage: 100MG:25MAY09-3JUN?70MG:7-15JUL?90MG:16JUL-2AUG?140MG:3AUG-11AUG09?INTER:8APR09?11AUG09-DISCON
     Route: 048
     Dates: start: 20090330, end: 20090811
  2. BAKTAR [Concomitant]
     Indication: PROPHYLAXIS
     Dosage: 1 DOSAGE FORM = 1 TAB
     Route: 048
     Dates: end: 20090811
  3. ZYLORIC [Concomitant]
     Indication: PROPHYLAXIS
     Dosage: 200MG/D(25MAY09)?300MG(26MAY09-ONG)?TAB
     Route: 048
     Dates: start: 20090525, end: 20090811
  4. POTASSIUM CITRATE [Concomitant]
     Indication: PROPHYLAXIS
     Dosage: 2 TABS TILL 8 APR09?2 DOSAGE FORM = 2 TABS(25MAY09)?3 TABS(26MAY09-ONG)?INJ-20ML(2MAY-01JUN09)
     Route: 048
     Dates: end: 20090811
  5. SODIUM CITRATE [Concomitant]
     Route: 048
     Dates: end: 20090811
  6. DEPAS [Concomitant]
     Dosage: TABS?1MG/DAY:UNK-20APR09?0.5MG/DAY:3JUL09-UNK
     Route: 048
     Dates: end: 20090811
  7. PREDONINE [Concomitant]
     Indication: ACUTE LYMPHOCYTIC LEUKAEMIA
     Dosage: UNK-30MAR09,50MG?10MG(10JUL-13JUL)?30MG(13-15JUL)?50MG(22MAY09)(16JUL-18JUL)?INJECTION
     Route: 042
  8. NORMAL SALINE [Concomitant]
     Route: 042
  9. POLARAMINE [Concomitant]
     Indication: PROPHYLAXIS
     Dosage: UNK-24APR2009,5MG?INJ (IV) 5MG/D(21-26MAY09)?ORAL(5MG/D)
     Route: 042
     Dates: end: 20090526
  10. HYDROCORTISONE SODIUM SUCCINATE [Concomitant]
     Indication: PROPHYLAXIS
     Route: 042
     Dates: end: 20090424
  11. NOVOLIN R [Concomitant]
     Indication: PROPHYLAXIS
     Dosage: 1 DF = 4 -10 UNITS
     Route: 058
     Dates: end: 20090610
  12. FURSULTIAMINE [Concomitant]
     Route: 048
     Dates: end: 20090408
  13. LASIX [Concomitant]
     Indication: PROPHYLAXIS
     Dosage: INJ:IV:20MG/DAY:18-JUL09-11AUG09?TAB
     Route: 048
     Dates: start: 20090718, end: 20090811
  14. ORGARAN [Concomitant]
     Indication: ACUTE LYMPHOCYTIC LEUKAEMIA
     Dosage: ADMINISTERED AT 2500 (UNIT UNSPECIFIED)?INJ
     Route: 042
     Dates: start: 20090721, end: 20090811
  15. VITAMIN B1 [Concomitant]
     Dosage: INJ
     Route: 042
     Dates: start: 20090522
  16. METOCLOPRAMIDE HCL [Concomitant]
     Route: 042
  17. FILGRASTIM [Concomitant]
     Route: 042
     Dates: end: 20090420
  18. MEROPENEM [Concomitant]
     Indication: PROPHYLAXIS
     Dosage: UNK-30MAR2009?09JUL2009-18JUL2009
     Route: 042
     Dates: end: 20090718
  19. VORICONAZOLE [Concomitant]
     Route: 042
     Dates: end: 20090330
  20. GASPORT [Concomitant]
     Indication: PROPHYLAXIS
     Dosage: TAB?GASPORT D
     Route: 048
     Dates: end: 20090811
  21. MINOCYCLINE HCL [Concomitant]
     Indication: PROPHYLAXIS
     Dosage: INJ?UNK-30MAR2009,100MG?13JUL2009-18JUL2009,200MG
     Route: 042
     Dates: end: 20090718
  22. MINOCYCLINE HCL [Concomitant]
     Indication: ACUTE LYMPHOCYTIC LEUKAEMIA
     Dosage: INJ?UNK-30MAR2009,100MG?13JUL2009-18JUL2009,200MG
     Route: 042
     Dates: end: 20090718
  23. FUNGUARD [Concomitant]
     Indication: PROPHYLAXIS
     Route: 042
     Dates: start: 20090718, end: 20090811
  24. LENOGRASTIM [Concomitant]
     Route: 042
  25. MAXIPIME FOR INJ [Concomitant]
     Indication: PROPHYLAXIS
     Route: 042
     Dates: start: 20090521, end: 20090529
  26. ISODINE [Concomitant]
     Indication: PROPHYLAXIS
     Dosage: SOLN?LIQ
     Route: 061
     Dates: start: 20090706, end: 20090811
  27. ITRIZOLE [Concomitant]
     Indication: PROPHYLAXIS
     Dosage: CAPS
     Route: 048
     Dates: start: 20090331, end: 20090811
  28. LACTIC ACID BACTERIA [Concomitant]
     Dosage: 3 DF = 3 TABS
     Route: 048
  29. VALTREX [Concomitant]
     Indication: PROPHYLAXIS
     Dosage: TABS
     Route: 048
     Dates: start: 20090714
  30. LOXONIN [Concomitant]
     Dosage: TAB
     Route: 048
     Dates: start: 20090718
  31. MUCOSTA [Concomitant]
     Indication: PROPHYLAXIS
     Dosage: TAB
     Route: 048
     Dates: start: 20090718, end: 20090721
  32. GLYCYRRHIZINIC ACID [Concomitant]
     Indication: PROPHYLAXIS
     Dosage: INJ
     Route: 042
  33. POLYETHYLENE GLYCOL [Concomitant]
     Indication: ACUTE LYMPHOCYTIC LEUKAEMIA
     Route: 042
     Dates: start: 20090709, end: 20090709
  34. ZOSYN [Concomitant]
     Indication: ACUTE LYMPHOCYTIC LEUKAEMIA
     Route: 042
     Dates: start: 20090719, end: 20090727
  35. VANCOMYCIN [Concomitant]
     Indication: PROPHYLAXIS
     Route: 042
     Dates: start: 20090718, end: 20090727
  36. CALCIUM GLUCONATE [Concomitant]
     Indication: PROPHYLAXIS
     Route: 042
     Dates: start: 20090722
  37. LANIRAPID [Concomitant]
     Route: 048
     Dates: end: 20090630
  38. POTASSIUM CHLORIDE [Concomitant]
     Indication: PROPHYLAXIS
     Dosage: INJ:20MEQ KIT
     Route: 042
     Dates: start: 20090522, end: 20090601
  39. VITANEURIN [Concomitant]
     Dosage: 1DF=3 CAP/DAY
     Route: 048
     Dates: end: 20090408
  40. BIOFERMIN R [Concomitant]
     Indication: PROPHYLAXIS
     Dosage: TAB?1DF=3TAB/DAY
     Route: 048
     Dates: start: 20090713, end: 20090811
  41. VENA [Concomitant]
     Indication: PRURITUS
     Dosage: TAB
     Route: 048
     Dates: start: 20090515, end: 20090610
  42. ELECTROLYTE SOLUTION [Concomitant]
     Indication: FLUID REPLACEMENT
     Dosage: INJ?CONTAINING AMINOACID VITAMIN B1
     Route: 042

REACTIONS (13)
  - Malignant neoplasm progression [Fatal]
  - White blood cell count decreased [Recovering/Resolving]
  - Neutrophil count decreased [Recovering/Resolving]
  - Platelet count decreased [Recovering/Resolving]
  - Anaemia [Recovering/Resolving]
  - Generalised oedema [Recovered/Resolved]
  - Sepsis [Recovered/Resolved]
  - Disseminated intravascular coagulation [Recovered/Resolved]
  - Gastrointestinal mucosal disorder [Recovered/Resolved]
  - Somnolence [Recovered/Resolved]
  - Decreased appetite [Recovered/Resolved]
  - Neuropathy peripheral [Not Recovered/Not Resolved]
  - Blood glucose increased [Recovered/Resolved]
